FAERS Safety Report 4527657-9 (Version None)
Quarter: 2004Q4

REPORT INFORMATION
  Report Type: 
  Country: None (occurrence: None)
  Receive Date: 20041215
  Receipt Date: 20041201
  Transmission Date: 20050328
  Serious: Yes (Other)
  Sender: FDA-Public Use
  Company Number: US-GLAXOSMITHKLINE-A0535662A

PATIENT
  Sex: Female
  Weight: 49.5 kg

DRUGS (3)
  1. NICORETTE [Suspect]
     Route: 002
     Dates: start: 19990101
  2. ALTERNATIVE THERAPY [Concomitant]
     Indication: OVARIAN CANCER
  3. HERBAL MEDICINE [Concomitant]
     Indication: OVARIAN CANCER

REACTIONS (4)
  - DRUG ABUSER [None]
  - OVARIAN CANCER [None]
  - RASH [None]
  - WEIGHT DECREASED [None]
